FAERS Safety Report 6704126-9 (Version None)
Quarter: 2010Q2

REPORT INFORMATION
  Report Type: 
  Country: None (occurrence: None)
  Receive Date: 20100430
  Receipt Date: 20100422
  Transmission Date: 20101027
  Serious: Yes (Other)
  Sender: FDA-Public Use
  Company Number: BR-JNJFOC-20100406679

PATIENT
  Sex: Female

DRUGS (1)
  1. TYLEX [Suspect]
     Indication: PAIN IN EXTREMITY
     Route: 065

REACTIONS (4)
  - DIZZINESS [None]
  - NAUSEA [None]
  - SOMNOLENCE [None]
  - TACHYCARDIA [None]
